FAERS Safety Report 6051161-2 (Version None)
Quarter: 2009Q1

REPORT INFORMATION
  Report Type: 
  Country: None (occurrence: None)
  Receive Date: 20090121
  Receipt Date: 20090109
  Transmission Date: 20090719
  Serious: Yes (Other)
  Sender: FDA-Public Use
  Company Number: DSA_32954_2008

PATIENT
  Weight: 2.5 kg

DRUGS (5)
  1. LORAZEPAM [Suspect]
     Indication: DRUG USE FOR UNKNOWN INDICATION
     Dosage: (2 MG QD TRANSPLACENTAL), (1-1.5 MG DAILY TRANSPLACENTAL)
     Route: 064
  2. CONCOR /00802601/ (CONCOR - BISOPROLOL) (NOT SPECIFIED) [Suspect]
     Indication: HYPERTENSION
     Dosage: (5 MG QD TRANSPLACENTAL)
     Route: 064
  3. AMITRIPTYLINE HCL [Suspect]
     Indication: DEPRESSION
     Dosage: (25 MG QD, TAPERING OFF TRANSPLACENTAL), (25 MG QD TRANSPLACENTAL)
     Route: 064
     Dates: start: 20080101, end: 20080601
  4. AMITRIPTYLINE HCL [Suspect]
     Indication: DEPRESSION
     Dosage: (25 MG QD, TAPERING OFF TRANSPLACENTAL), (25 MG QD TRANSPLACENTAL)
     Route: 064
     Dates: end: 20080601
  5. ZURCAL /01263201/ (ZURCAL - PANTOPRAZOLE DELAYED RELEASE) (NOT SPECIFI [Suspect]
     Indication: DRUG USE FOR UNKNOWN INDICATION
     Dosage: (DF ON DEMAND TRANSPLACENTAL)
     Route: 064

REACTIONS (3)
  - CAESAREAN SECTION [None]
  - FOETAL GROWTH RETARDATION [None]
  - MATERNAL DRUGS AFFECTING FOETUS [None]
